FAERS Safety Report 5192382-0 (Version None)
Quarter: 2006Q4

REPORT INFORMATION
  Report Type: 
  Country: None (occurrence: None)
  Receive Date: 20061227
  Receipt Date: 20061215
  Transmission Date: 20070319
  Serious: Yes (Hospitalization, Other)
  Sender: FDA-Public Use
  Company Number: GB-PFIZER INC-2006154712

PATIENT
  Age: 29 Year
  Sex: Female

DRUGS (2)
  1. SYNAREL SPRAY [Suspect]
     Indication: ENDOMETRIOSIS
     Route: 045
     Dates: start: 20061016, end: 20061117
  2. VENTOLIN [Concomitant]
     Indication: ASTHMA
     Route: 055
     Dates: start: 20030101

REACTIONS (2)
  - ASTHMA [None]
  - CONDITION AGGRAVATED [None]
